FAERS Safety Report 16994602 (Version 1)
Quarter: 2019Q4

REPORT INFORMATION
  Report Type: Spontaneous
  Country: TW (occurrence: TW)
  Receive Date: 20191105
  Receipt Date: 20191105
  Transmission Date: 20200122
  Serious: Yes (Other)
  Sender: FDA-Public Use
  Company Number: TW-ASTELLAS-2019US036345

PATIENT
  Age: 9 Decade
  Sex: Male

DRUGS (1)
  1. XTANDI [Suspect]
     Active Substance: ENZALUTAMIDE
     Indication: HORMONE-REFRACTORY PROSTATE CANCER
     Route: 048
     Dates: start: 2019, end: 2019

REACTIONS (5)
  - Fatigue [Recovering/Resolving]
  - Bone pain [Unknown]
  - Gait inability [Recovered/Resolved]
  - Malignant neoplasm progression [Unknown]
  - Prostatic specific antigen increased [Not Recovered/Not Resolved]

NARRATIVE: CASE EVENT DATE: 2019
